FAERS Safety Report 5450258-5 (Version None)
Quarter: 2007Q3

REPORT INFORMATION
  Report Type: 
  Country: None (occurrence: None)
  Receive Date: 20070912
  Receipt Date: 20070905
  Transmission Date: 20080115
  Serious: Yes (Other)
  Sender: FDA-Public Use
  Company Number: US-SANOFI-SYNTHELABO-A03200704963

PATIENT
  Sex: Male

DRUGS (14)
  1. FOLIC ACID [Concomitant]
     Route: 048
  2. ALTACE [Concomitant]
     Route: 048
  3. K-DUR 10 [Concomitant]
     Route: 048
  4. LASIX [Concomitant]
     Route: 048
  5. LIPITOR [Concomitant]
     Route: 048
  6. ASPIRIN [Suspect]
     Indication: PROPHYLAXIS
     Route: 048
     Dates: end: 20050101
  7. PLAVIX [Suspect]
     Indication: PROPHYLAXIS
     Route: 048
     Dates: start: 20010101
  8. M.V.I. [Concomitant]
     Route: 048
  9. CITRACAL [Concomitant]
     Route: 048
  10. CITRUCEL [Concomitant]
     Route: 048
  11. OMACOR [Concomitant]
     Route: 048
  12. CIALIS [Concomitant]
     Route: 048
  13. AVODART [Concomitant]
     Route: 048
  14. XALATAN [Concomitant]
     Route: 047

REACTIONS (3)
  - PAIN IN EXTREMITY [None]
  - PENILE HAEMORRHAGE [None]
  - THROMBOSIS [None]
